FAERS Safety Report 9317109 (Version 1)
Quarter: 2013Q2

REPORT INFORMATION
  Report Type: Spontaneous
  Country: US (occurrence: US)
  Receive Date: 20130530
  Receipt Date: 20130530
  Transmission Date: 20140414
  Serious: No
  Sender: FDA-Public Use
  Company Number: US-NOVEN-12US005071

PATIENT
  Age: 6 Year
  Sex: Female
  Weight: 18.14 kg

DRUGS (1)
  1. DAYTRANA [Suspect]
     Indication: ATTENTION DEFICIT/HYPERACTIVITY DISORDER
     Dosage: 10 MG, QD
     Route: 062
     Dates: start: 20120803

REACTIONS (4)
  - Psychomotor hyperactivity [Not Recovered/Not Resolved]
  - Repetitive speech [Not Recovered/Not Resolved]
  - Yawning [Not Recovered/Not Resolved]
  - Tic [Not Recovered/Not Resolved]
